FAERS Safety Report 6894881-X (Version None)
Quarter: 2010Q3

REPORT INFORMATION
  Report Type: 
  Country: None (occurrence: None)
  Receive Date: 20100730
  Receipt Date: 20100730
  Transmission Date: 20110219
  Serious: Yes (Other)
  Sender: FDA-Public Use
  Company Number: None

PATIENT
  Age: 75 Year
  Sex: Female
  Weight: 79.8331 kg

DRUGS (3)
  1. PLAVIX [Suspect]
     Indication: SURGERY
     Dosage: 1 DAILY
     Dates: start: 20070521, end: 20090601
  2. PLAVIX [Suspect]
     Indication: SURGERY
     Dosage: 1 DAILY
     Dates: start: 20100316, end: 20100330
  3. METFORMIN HCL [Suspect]
     Indication: TYPE 2 DIABETES MELLITUS
     Dosage: 1 TAB TWICE DAILY
     Dates: start: 20060911, end: 20100201

REACTIONS (9)
  - ARTHRALGIA [None]
  - ASTHENIA [None]
  - BONE PAIN [None]
  - CHEST PAIN [None]
  - DIARRHOEA [None]
  - DYSKINESIA [None]
  - DYSPNOEA [None]
  - GAIT DISTURBANCE [None]
  - SENSATION OF HEAVINESS [None]
